FAERS Safety Report 20921332 (Version 1)
Quarter: 2022Q2

REPORT INFORMATION
  Report Type: Spontaneous
  Country: US (occurrence: None)
  Receive Date: 20220606
  Receipt Date: 20220606
  Transmission Date: 20220721
  Serious: Yes (Other)
  Sender: FDA-Public Use
  Company Number: None

PATIENT
  Age: 60 Year
  Sex: Male
  Weight: 75.6 kg

DRUGS (5)
  1. MONTELUKAST [Suspect]
     Active Substance: MONTELUKAST SODIUM
     Indication: Psoriasis
     Dosage: OTHER FREQUENCY : VARIOUS;?
     Route: 058
     Dates: start: 20211224, end: 20220513
  2. MONTELUKAST [Suspect]
     Active Substance: MONTELUKAST SODIUM
     Indication: Cough
     Dosage: OTHER QUANTITY : 1 TABLET(S);?FREQUENCY : EVERY DAY BEFORE NOON;?
     Route: 048
     Dates: start: 20211224, end: 20220520
  3. LIVALO [Concomitant]
     Active Substance: PITAVASTATIN CALCIUM
  4. METOPROLOL [Concomitant]
     Active Substance: METOPROLOL
  5. SKYRIZI [Concomitant]
     Active Substance: RISANKIZUMAB-RZAA

REACTIONS (2)
  - Respiratory tract inflammation [None]
  - Cough [None]

NARRATIVE: CASE EVENT DATE: 20211224
